FAERS Safety Report 8415309-4 (Version None)
Quarter: 2012Q2

REPORT INFORMATION
  Report Type: 
  Country: None (occurrence: None)
  Receive Date: 20120606
  Receipt Date: 20120531
  Transmission Date: 20120825
  Serious: No
  Sender: FDA-Public Use
  Company Number: US-PFIZER INC-2012132497

PATIENT
  Sex: Female
  Weight: 86.621 kg

DRUGS (8)
  1. LYRICA [Suspect]
     Indication: PAIN
     Dosage: 200 MG, 2X/DAY
     Dates: start: 20120101
  2. LYRICA [Suspect]
     Indication: CERVICAL VERTEBRAL FRACTURE
     Dosage: UNK
     Dates: start: 20111201
  3. LYRICA [Suspect]
     Dosage: 200 MG, 3X/DAY
     Dates: start: 20120101
  4. XANAX [Concomitant]
     Indication: PANIC ATTACK
     Dosage: 1MG AS NEEDED IN THE DAY AND 2MG DAILY AT NIGHT
  5. XANAX [Concomitant]
     Indication: ANXIETY
  6. XANAX [Concomitant]
     Indication: SLEEP DISORDER
  7. BENICAR [Concomitant]
     Indication: HYPERTENSION
     Dosage: UNK
     Dates: end: 20120101
  8. PERCOCET [Concomitant]
     Indication: PAIN
     Dosage: UNK

REACTIONS (2)
  - DRUG INEFFECTIVE [None]
  - PAIN IN JAW [None]
